FAERS Safety Report 5826242-6 (Version None)
Quarter: 2008Q3

REPORT INFORMATION
  Report Type: 
  Country: None (occurrence: None)
  Receive Date: 20080723
  Receipt Date: 20080709
  Transmission Date: 20090109
  Serious: Yes (Death)
  Sender: FDA-Public Use
  Company Number: MEDI-0006131

PATIENT
  Age: 7 Month
  Sex: Male
  Weight: 7 kg

DRUGS (5)
  1. SYNAGIS [Suspect]
     Indication: SPINAL MUSCULAR ATROPHY
     Dosage: 75 MG, INTRAMUSCULAR
     Route: 030
     Dates: start: 20071005, end: 20071005
  2. LACTULOSE [Concomitant]
  3. HYOSCINE PATCH (HYOSCINE) [Concomitant]
  4. ERYTHROMYCIN [Concomitant]
  5. MORPHINE SULFATE [Concomitant]

REACTIONS (3)
  - LOSS OF CONSCIOUSNESS [None]
  - PALLOR [None]
  - SUDDEN DEATH [None]
